FAERS Safety Report 4391691-2 (Version None)
Quarter: 2004Q3

REPORT INFORMATION
  Report Type: 
  Country: None (occurrence: None)
  Receive Date: 20040701
  Receipt Date: 20040617
  Transmission Date: 20050211
  Serious: Yes (Death)
  Sender: FDA-Public Use
  Company Number: T04-USA-00730-01

PATIENT
  Age: 52 Year
  Sex: Female
  Weight: 68.0396 kg

DRUGS (4)
  1. LEXAPRO [Suspect]
     Indication: MAJOR DEPRESSION
     Dates: start: 20031203
  2. CELEXA [Suspect]
     Indication: DEPRESSION
  3. ETHANOL [Concomitant]
  4. METHADONE HCL [Concomitant]

REACTIONS (6)
  - ARRHYTHMIA [None]
  - ARTERIOSPASM CORONARY [None]
  - CORONARY ARTERY ATHEROSCLEROSIS [None]
  - CORONARY ARTERY STENOSIS [None]
  - PULMONARY OEDEMA [None]
  - SUDDEN CARDIAC DEATH [None]
